FAERS Safety Report 15232129 (Version 1)
Quarter: 2018Q3

REPORT INFORMATION
  Report Type: Spontaneous
  Country: US (occurrence: US)
  Receive Date: 20180802
  Receipt Date: 20180802
  Transmission Date: 20181010
  Serious: Yes (Other)
  Sender: FDA-Public Use
  Company Number: US-BAYER-2018-142590

PATIENT
  Age: 72 Year
  Sex: Female

DRUGS (1)
  1. COPPERTONE SPORT SPF 30 [Suspect]
     Active Substance: AVOBENZONE\HOMOSALATE\OCTISALATE\OCTOCRYLENE
     Indication: RASH ERYTHEMATOUS
     Dosage: UNK
     Dates: start: 20180426, end: 20180606

REACTIONS (2)
  - Product use in unapproved indication [None]
  - Application site rash [None]

NARRATIVE: CASE EVENT DATE: 2018
